FAERS Safety Report 21587064 (Version 1)
Quarter: 2022Q4

REPORT INFORMATION
  Report Type: Spontaneous
  Country: US (occurrence: US)
  Receive Date: 20221114
  Receipt Date: 20221114
  Transmission Date: 20230113
  Serious: No
  Sender: FDA-Public Use
  Company Number: US-JNJFOC-20221103680

PATIENT
  Age: 70 Year
  Sex: Male
  Weight: 81.720 kg

DRUGS (1)
  1. XARELTO [Suspect]
     Active Substance: RIVAROXABAN
     Indication: Deep vein thrombosis
     Route: 048
     Dates: start: 202208

REACTIONS (6)
  - Peripheral swelling [Not Recovered/Not Resolved]
  - Faeces hard [Unknown]
  - Faeces discoloured [Unknown]
  - Diarrhoea [Unknown]
  - Pain [Unknown]
  - Urinary incontinence [Unknown]
